FAERS Safety Report 4356475-X (Version None)
Quarter: 2004Q2

REPORT INFORMATION
  Report Type: 
  Country: None (occurrence: None)
  Receive Date: 20040506
  Receipt Date: 20040423
  Transmission Date: 20050107
  Serious: Yes (Hospitalization)
  Sender: FDA-Public Use
  Company Number: 2004-BP-01510BP

PATIENT
  Age: 63 Year
  Sex: Female

DRUGS (3)
  1. ATROVENT [Suspect]
     Indication: CHRONIC OBSTRUCTIVE AIRWAYS DISEASE
     Dosage: 144 MCG (18 MCG, 2 PUFFS QID), IH
     Route: 055
     Dates: start: 20020101, end: 20040301
  2. ATROVENT [Suspect]
  3. COMBIVENT [Concomitant]

REACTIONS (5)
  - DRUG EFFECT DECREASED [None]
  - DYSPNOEA [None]
  - OXYGEN SATURATION DECREASED [None]
  - PHARMACEUTICAL PRODUCT COMPLAINT [None]
  - STRESS SYMPTOMS [None]
